FAERS Safety Report 10019695 (Version 1)
Quarter: 2014Q1

REPORT INFORMATION
  Report Type: Spontaneous
  Country: KR (occurrence: KR)
  Receive Date: 20140318
  Receipt Date: 20140318
  Transmission Date: 20141002
  Serious: Yes (Hospitalization, Other)
  Sender: FDA-Public Use
  Company Number: PHHY2014KR029412

PATIENT
  Age: 43 Year
  Sex: Female

DRUGS (1)
  1. PARACETAMOL [Suspect]
     Indication: UPPER RESPIRATORY TRACT INFECTION

REACTIONS (17)
  - Toxic epidermal necrolysis [Unknown]
  - Rash erythematous [Unknown]
  - Blister [Unknown]
  - Pharyngeal ulceration [Unknown]
  - Conjunctivitis [Unknown]
  - Malaise [Unknown]
  - Rash macular [Unknown]
  - Stevens-Johnson syndrome [Unknown]
  - Tenderness [Unknown]
  - Dermatitis bullous [Recovering/Resolving]
  - Blood pressure decreased [Unknown]
  - Heart rate increased [Unknown]
  - White blood cell count decreased [Unknown]
  - Aspartate aminotransferase increased [Unknown]
  - Blood calcium decreased [Unknown]
  - Blood potassium decreased [Unknown]
  - Blood sodium decreased [Unknown]
